FAERS Safety Report 24975750 (Version 1)
Quarter: 2025Q1

REPORT INFORMATION
  Report Type: Spontaneous
  Country: US (occurrence: US)
  Receive Date: 20250217
  Receipt Date: 20250217
  Transmission Date: 20250408
  Serious: No
  Sender: AMGEN
  Company Number: US-AMGEN-USASP2025028315

PATIENT
  Sex: Female

DRUGS (34)
  1. ENBREL [Suspect]
     Active Substance: ETANERCEPT
     Indication: Product used for unknown indication
     Route: 065
  2. PROLIA [Suspect]
     Active Substance: DENOSUMAB
     Indication: Product used for unknown indication
     Route: 065
  3. TYLENOL [Concomitant]
     Active Substance: ACETAMINOPHEN
  4. BACLOFEN [Concomitant]
     Active Substance: BACLOFEN
  5. CHOLECALCIFEROL [Concomitant]
     Active Substance: CHOLECALCIFEROL
  6. CYANOCOBALAMIN [Concomitant]
     Active Substance: CYANOCOBALAMIN
  7. CEQUA [Concomitant]
     Active Substance: CYCLOSPORINE
  8. BENADRYL [Concomitant]
     Active Substance: DIPHENHYDRAMINE HYDROCHLORIDE
  9. CYMBALTA [Concomitant]
     Active Substance: DULOXETINE HYDROCHLORIDE
  10. LASIX [Concomitant]
     Active Substance: FUROSEMIDE
  11. NEURONTIN [Concomitant]
     Active Substance: GABAPENTIN
  12. SYNTHROID [Concomitant]
     Active Substance: LEVOTHYROXINE SODIUM
  13. LEVOTHROID [Concomitant]
     Active Substance: LEVOTHYROXINE SODIUM
  14. PRINIVIL [Concomitant]
     Active Substance: LISINOPRIL
  15. ZESTRIL [Concomitant]
     Active Substance: LISINOPRIL
  16. ATIVAN [Concomitant]
     Active Substance: LORAZEPAM
  17. MAGNESIUM OXIDE [Concomitant]
     Active Substance: MAGNESIUM OXIDE
  18. GLUCOPHAGE [Concomitant]
     Active Substance: METFORMIN HYDROCHLORIDE
  19. TOPROL XL [Concomitant]
     Active Substance: METOPROLOL SUCCINATE
  20. MYRBETRIQ [Concomitant]
     Active Substance: MIRABEGRON
  21. NITROSTAT [Concomitant]
     Active Substance: NITROGLYCERIN
  22. PROTONIX [Concomitant]
     Active Substance: PANTOPRAZOLE SODIUM
  23. ELMIRON [Concomitant]
     Active Substance: PENTOSAN POLYSULFATE SODIUM
  24. SALAGEN [Concomitant]
     Active Substance: PILOCARPINE HYDROCHLORIDE
  25. KLOR-CON M10 [Concomitant]
     Active Substance: POTASSIUM CHLORIDE
  26. DELTASONE [Concomitant]
     Active Substance: PREDNISONE
  27. SODIUM CHLORIDE [Concomitant]
     Active Substance: SODIUM CHLORIDE
  28. ALDACTONE [Concomitant]
     Active Substance: SPIRONOLACTONE
  29. CARAFATE [Concomitant]
     Active Substance: SUCRALFATE
  30. KENALOG [Concomitant]
     Active Substance: TRIAMCINOLONE ACETONIDE
  31. ZINC [Concomitant]
     Active Substance: ZINC
  32. NORVASC [Concomitant]
     Active Substance: AMLODIPINE BESYLATE
  33. ATROPINE [Concomitant]
     Active Substance: ATROPINE
  34. K dur [Concomitant]

REACTIONS (1)
  - Abdominal discomfort [Unknown]
